FAERS Safety Report 6129211-4 (Version None)
Quarter: 2009Q1

REPORT INFORMATION
  Report Type: 
  Country: None (occurrence: None)
  Receive Date: 20090323
  Receipt Date: 20090323
  Transmission Date: 20090719
  Serious: Yes (Hospitalization)
  Sender: FDA-Public Use
  Company Number: None

PATIENT
  Sex: Female

DRUGS (2)
  1. ARMOUR THYROID 30 MG FOREST PHARMACEUTICALS [Suspect]
     Dosage: 3-5 TABLETS EVERY MORNING PO
     Route: 048
     Dates: start: 20090201, end: 20090322
  2. ARMOUR THYROID 30 MG FOREST PHARMACEUTICALS [Suspect]
     Dosage: 5-6 TABLETS EVERY MORNING PO
     Route: 048
     Dates: start: 20090201, end: 20090322

REACTIONS (2)
  - HEART RATE INCREASED [None]
  - PRODUCT QUALITY ISSUE [None]
